FAERS Safety Report 10456732 (Version 1)
Quarter: 2014Q3

REPORT INFORMATION
  Report Type: Spontaneous
  Country: US (occurrence: US)
  Receive Date: 20140916
  Receipt Date: 20140916
  Transmission Date: 20150326
  Serious: Yes (Hospitalization)
  Sender: FDA-Public Use
  Company Number: US-ASTRAZENECA-2014SE67675

PATIENT
  Age: 54 Year
  Sex: Female

DRUGS (15)
  1. BRILINTA [Suspect]
     Active Substance: TICAGRELOR
     Indication: CHEST PAIN
     Route: 048
     Dates: start: 201409
  2. LANTUS [Concomitant]
     Active Substance: INSULIN GLARGINE
     Dosage: UNKNOWN UNK
  3. PROTONIX [Concomitant]
     Active Substance: PANTOPRAZOLE SODIUM
     Dosage: UNKNOWN UNK
  4. CITRICAL [Concomitant]
     Active Substance: CALCIUM CITRATE
     Dosage: UNKNOWN UNK
  5. NETANX [Concomitant]
     Dosage: UNKNOWN UNK
  6. NOVOLOG [Concomitant]
     Active Substance: INSULIN ASPART
     Dosage: UNKNOWN UNK
  7. DIOVAN [Concomitant]
     Active Substance: VALSARTAN
     Dosage: UNKNOWN UNK
  8. MULTIPLE VITAMIN [Concomitant]
     Active Substance: VITAMINS
     Dosage: UNKNOWN UNK
  9. CARDIZEM [Concomitant]
     Active Substance: DILTIAZEM HYDROCHLORIDE
     Dosage: UNKNOWN UNK
  10. ASPIRIN. [Concomitant]
     Active Substance: ASPIRIN
     Route: 048
  11. LIPITOR [Concomitant]
     Active Substance: ATORVASTATIN CALCIUM
     Dosage: UNKNOWN UNK
  12. LUNESTA [Concomitant]
     Active Substance: ESZOPICLONE
     Dosage: UNKNOWN UNK
  13. GLUCOHAGE [Concomitant]
     Dosage: UNKNOWN UNK
  14. LYRICA [Concomitant]
     Active Substance: PREGABALIN
     Dosage: UNKNOWN UNK
  15. SYNTHROID [Concomitant]
     Active Substance: LEVOTHYROXINE SODIUM
     Dosage: UNKNOWN UNK

REACTIONS (1)
  - Dyspnoea [Unknown]

NARRATIVE: CASE EVENT DATE: 201409
